FAERS Safety Report 8455015 (Version 13)
Quarter: 2014Q1

REPORT INFORMATION
  Report Type: Spontaneous
  Country: US (occurrence: US)
  Receive Date: 20120313
  Receipt Date: 20140221
  Transmission Date: 20141002
  Serious: Yes (Hospitalization)
  Sender: FDA-Public Use
  Company Number: US-BIOGENIDEC-2012BI008164

PATIENT
  Age: 60 Year
  Sex: Female

DRUGS (4)
  1. AVONEX [Suspect]
     Indication: MULTIPLE SCLEROSIS
     Route: 030
     Dates: start: 19991008, end: 2003
  2. AVONEX [Suspect]
     Indication: MULTIPLE SCLEROSIS
     Route: 030
     Dates: start: 2003, end: 201201
  3. AVONEX [Suspect]
     Indication: MULTIPLE SCLEROSIS
     Route: 030
     Dates: start: 20120608, end: 20130221
  4. AVONEX [Suspect]
     Indication: MULTIPLE SCLEROSIS
     Route: 030
     Dates: start: 20130422

REACTIONS (20)
  - Meningioma benign [Recovered/Resolved with Sequelae]
  - Procedural complication [Not Recovered/Not Resolved]
  - Tooth avulsion [Recovered/Resolved]
  - Confusion postoperative [Not Recovered/Not Resolved]
  - Fall [Recovered/Resolved]
  - Post procedural complication [Not Recovered/Not Resolved]
  - Cognitive disorder [Not Recovered/Not Resolved]
  - Sensation of heaviness [Recovered/Resolved]
  - Head injury [Recovered/Resolved]
  - Oral pain [Not Recovered/Not Resolved]
  - Osteomalacia [Not Recovered/Not Resolved]
  - Loose tooth [Not Recovered/Not Resolved]
  - Malocclusion [Not Recovered/Not Resolved]
  - Photopsia [Recovered/Resolved]
  - Animal bite [Recovered/Resolved]
  - Amnesia [Not Recovered/Not Resolved]
  - Memory impairment [Not Recovered/Not Resolved]
  - Asthenia [Recovered/Resolved]
  - Multiple sclerosis relapse [Recovered/Resolved]
  - Headache [Recovered/Resolved]
